FAERS Safety Report 5075808-2 (Version None)
Quarter: 2006Q3

REPORT INFORMATION
  Report Type: 
  Country: None (occurrence: None)
  Receive Date: 20060809
  Receipt Date: 20060629
  Transmission Date: 20061208
  Serious: Yes (Hospitalization)
  Sender: FDA-Public Use
  Company Number: 062936

PATIENT
  Age: 1 Year
  Sex: Male

DRUGS (1)
  1. SPEKTRAMOX [Suspect]
     Indication: OTITIS MEDIA ACUTE
     Dosage: 7.5ML PER DAY
     Route: 048
     Dates: start: 20060519, end: 20060528

REACTIONS (5)
  - COUGH [None]
  - FATIGUE [None]
  - THROMBOCYTOPENIA [None]
  - VOMITING [None]
  - WEIGHT DECREASED [None]
